FAERS Safety Report 21850909 (Version 1)
Quarter: 2023Q1

REPORT INFORMATION
  Report Type: Report from Study
  Country: CA (occurrence: CA)
  Receive Date: 20230111
  Receipt Date: 20230111
  Transmission Date: 20230418
  Serious: Yes (Other)
  Sender: FDA-Public Use
  Company Number: CA-ABBVIE-4263501

PATIENT
  Sex: Male

DRUGS (1)
  1. RINVOQ [Suspect]
     Active Substance: UPADACITINIB
     Indication: Dermatitis atopic
     Route: 048
     Dates: start: 20220301

REACTIONS (5)
  - Cataract [Unknown]
  - Stress [Unknown]
  - Dermatitis atopic [Unknown]
  - Blood cholesterol increased [Unknown]
  - Spinal osteoarthritis [Unknown]
